FAERS Safety Report 20844731 (Version 2)
Quarter: 2022Q2

REPORT INFORMATION
  Report Type: Spontaneous
  Country: US (occurrence: US)
  Receive Date: 20220518
  Receipt Date: 20220525
  Transmission Date: 20220721
  Serious: No
  Sender: FDA-Public Use
  Company Number: US-PFIZER INC-202200688858

PATIENT
  Age: 52 Year
  Sex: Male

DRUGS (1)
  1. RETACRIT [Suspect]
     Active Substance: EPOETIN ALFA-EPBX
     Dosage: 40000 IU (ADMINISTER 1ML SUBCUT Q 2WKS. FOR HGH LESS THAN 11.0)
     Route: 058

REACTIONS (3)
  - Off label use [Unknown]
  - Fatigue [Unknown]
  - Anaemia [Unknown]
